FAERS Safety Report 6304105-X (Version None)
Quarter: 2009Q3

REPORT INFORMATION
  Report Type: 
  Country: None (occurrence: None)
  Receive Date: 20090806
  Receipt Date: 20090728
  Transmission Date: 20100115
  Serious: Yes (Hospitalization)
  Sender: FDA-Public Use
  Company Number: FABR-1000889

PATIENT
  Age: 55 Year
  Sex: Female
  Weight: 65 kg

DRUGS (5)
  1. FABRAZYME [Suspect]
     Indication: FABRY'S DISEASE
     Dosage: 35 MG, 1X/W, INTRAVENOUS 65 MG, Q2W, INTRAVENOUS
     Route: 042
     Dates: start: 20090620, end: 20090701
  2. FABRAZYME [Suspect]
     Indication: FABRY'S DISEASE
     Dosage: 35 MG, 1X/W, INTRAVENOUS 65 MG, Q2W, INTRAVENOUS
     Route: 042
     Dates: start: 20090718
  3. CLARITIN [Concomitant]
  4. TYLENOL [Concomitant]
  5. ATENOLOL [Concomitant]

REACTIONS (3)
  - BLINDNESS UNILATERAL [None]
  - SPEECH DISORDER [None]
  - TRANSIENT ISCHAEMIC ATTACK [None]
